FAERS Safety Report 7943613-2 (Version None)
Quarter: 2011Q4

REPORT INFORMATION
  Report Type: 
  Country: None (occurrence: None)
  Receive Date: 20111128
  Receipt Date: 20111122
  Transmission Date: 20120403
  Serious: Yes (Other)
  Sender: FDA-Public Use
  Company Number: US-PFIZER INC-2011286159

PATIENT
  Age: 69 Year
  Sex: Male
  Weight: 49.887 kg

DRUGS (3)
  1. TAMSULOSIN HYDROCHLORIDE [Concomitant]
     Indication: URINARY RETENTION
     Dosage: UNK
  2. REVATIO [Suspect]
     Indication: PULMONARY ARTERIAL HYPERTENSION
     Dosage: 20 MG, 3X/DAY
     Route: 048
  3. OXYGEN [Concomitant]
     Dosage: UNK

REACTIONS (2)
  - BLOOD PRESSURE INCREASED [None]
  - LUNG DISORDER [None]
